FAERS Safety Report 4630302-5 (Version None)
Quarter: 2005Q2

REPORT INFORMATION
  Report Type: 
  Country: None (occurrence: None)
  Receive Date: 20050408
  Receipt Date: 20041019
  Transmission Date: 20051028
  Serious: Yes (Hospitalization)
  Sender: FDA-Public Use
  Company Number: 200413304JP

PATIENT
  Age: 39 Year
  Sex: Male
  Weight: 86 kg

DRUGS (10)
  1. LASIX [Suspect]
     Indication: CARDIAC FAILURE
     Route: 048
     Dates: start: 20041013, end: 20041013
  2. FOSMICIN [Suspect]
     Route: 041
     Dates: start: 20041012, end: 20041014
  3. HUMALOG [Concomitant]
     Indication: DIABETES MELLITUS
     Dosage: DOSE: 7-7-7-0
     Route: 048
  4. PENFILL N [Concomitant]
     Indication: DIABETES MELLITUS
     Dosage: DOSE: 0-0-0-8
     Route: 048
  5. RENIVEZE                                /JPN/ [Concomitant]
     Indication: HYPERTENSION
     Route: 048
     Dates: start: 20000101
  6. PHENOBAL [Concomitant]
     Indication: CEREBRAL HAEMORRHAGE
     Route: 048
     Dates: start: 20000101
  7. LIPITOR [Concomitant]
     Indication: HYPERLIPIDAEMIA
     Route: 048
     Dates: start: 20000101
  8. EURODIN [Concomitant]
     Indication: INSOMNIA
     Route: 048
     Dates: start: 20040701
  9. BENZALIN [Concomitant]
     Indication: INSOMNIA
     Route: 048
     Dates: start: 20041012, end: 20041018
  10. FOSMICIN [Concomitant]
     Indication: INFECTION
     Route: 041
     Dates: start: 20041012, end: 20041013

REACTIONS (14)
  - BLOOD CREATININE INCREASED [None]
  - BLOOD GLUCOSE INCREASED [None]
  - BLOOD UREA INCREASED [None]
  - DEHYDRATION [None]
  - DIARRHOEA [None]
  - DRUG ERUPTION [None]
  - HAEMATOCRIT DECREASED [None]
  - HAEMOGLOBIN DECREASED [None]
  - HYPERTENSION [None]
  - INFECTION [None]
  - OLIGURIA [None]
  - PLATELET COUNT DECREASED [None]
  - RED BLOOD CELL COUNT DECREASED [None]
  - RENAL DISORDER [None]
